FAERS Safety Report 9543779 (Version 2)
Quarter: 2013Q4

REPORT INFORMATION
  Report Type: Spontaneous
  Country: JP (occurrence: JP)
  Receive Date: 20130923
  Receipt Date: 20131011
  Transmission Date: 20140711
  Serious: Yes (Death)
  Sender: FDA-Public Use
  Company Number: JP-NAPPMUNDI-GBR-2013-0015774

PATIENT
  Age: 78 Year
  Sex: Female
  Weight: 45.5 kg

DRUGS (15)
  1. NORSPAN 5MG [Suspect]
     Indication: SCIATICA
     Dosage: 5 MCG, Q1H
     Route: 062
     Dates: start: 20130810, end: 20130905
  2. AMLODIN [Concomitant]
     Indication: HYPERTENSION
     Dosage: 5 MG, DAILY
     Route: 048
     Dates: end: 20130905
  3. ATELEC [Concomitant]
     Indication: HYPERTENSION
     Dosage: 5 MG, DAILY
     Route: 048
     Dates: end: 20130905
  4. THEODUR [Concomitant]
     Indication: BRONCHITIS CHRONIC
     Dosage: 50 MG, DAILY
     Route: 048
     Dates: end: 20130905
  5. THEODUR [Concomitant]
     Indication: ASTHMA
  6. RYTHMODAN                          /00271802/ [Concomitant]
     Indication: ARRHYTHMIA
     Dosage: 150 MG, DAILY
     Route: 048
     Dates: end: 20130905
  7. SOLANAX [Concomitant]
     Indication: INSOMNIA
     Dosage: 0.4 MG, DAILY
     Route: 048
     Dates: end: 20130905
  8. SULPIRIDE [Concomitant]
     Indication: DEPRESSION
     Dosage: 50 MG, DAILY
     Route: 048
     Dates: end: 20130905
  9. PAXIL [Concomitant]
     Indication: DEPRESSION
     Dosage: 20 MG, DAILY
     Route: 048
     Dates: end: 20130905
  10. MICARDIS [Concomitant]
     Indication: HYPERTENSION
     Dosage: 40 MG, DAILY
     Route: 048
     Dates: end: 20130905
  11. TERIPARATIDE ACETATE [Concomitant]
     Indication: OSTEOPOROSIS
     Dosage: 56.5 MG, DAILY
     Route: 058
     Dates: start: 20130802, end: 20130905
  12. TRAZODONE HYDROCHLORIDE [Concomitant]
     Indication: DEPRESSION
     Dosage: 25 MG, DAILY
     Route: 048
     Dates: end: 20130905
  13. NEO VITACAIN                       /01127401/ [Concomitant]
     Indication: PAIN
     Dosage: 5 ML, UNK
     Dates: start: 20130809, end: 20130809
  14. SODIUM SALICYLATE [Concomitant]
     Indication: PAIN
     Dosage: 10 ML, UNK
     Dates: start: 20130809, end: 20130809
  15. RABBIT VACCINIA EXTRACT [Concomitant]
     Indication: PAIN
     Dosage: 3 ML, UNK
     Dates: start: 20130809, end: 20130809

REACTIONS (2)
  - Cardiac failure [Fatal]
  - Palpitations [Recovered/Resolved]
